FAERS Safety Report 16750391 (Version 1)
Quarter: 2019Q3

REPORT INFORMATION
  Report Type: Spontaneous
  Country: US (occurrence: US)
  Receive Date: 20190828
  Receipt Date: 20190828
  Transmission Date: 20191005
  Serious: Yes (Hospitalization, Other)
  Sender: FDA-Public Use
  Company Number: US-AMNEAL PHARMACEUTICALS-2019AMN00935

PATIENT
  Sex: Female

DRUGS (1)
  1. CAPECITABINE. [Suspect]
     Active Substance: CAPECITABINE
     Indication: BREAST CANCER STAGE III
     Dosage: UNK
     Route: 065

REACTIONS (1)
  - Pneumatosis intestinalis [Recovered/Resolved]
